FAERS Safety Report 11166384 (Version 1)
Quarter: 2015Q2

REPORT INFORMATION
  Report Type: Spontaneous
  Country: US (occurrence: US)
  Receive Date: 20150605
  Receipt Date: 20150605
  Transmission Date: 20150821
  Serious: No
  Sender: FDA-Public Use
  Company Number: US-JNJFOC-20150421753

PATIENT

DRUGS (1)
  1. PARAFON FORTE DSC [Suspect]
     Active Substance: CHLORZOXAZONE
     Indication: BACK PAIN
     Dosage: 250 MG/ 300MG
     Route: 048

REACTIONS (1)
  - Drug effect decreased [Unknown]
